FAERS Safety Report 9675926 (Version 1)
Quarter: 2013Q4

REPORT INFORMATION
  Report Type: Spontaneous
  Country: US (occurrence: None)
  Receive Date: 20131105
  Receipt Date: 20131105
  Transmission Date: 20140711
  Serious: Yes (Hospitalization)
  Sender: FDA-Public Use
  Company Number: 1713747-2013-99972

PATIENT
  Age: 55 Year
  Sex: Male
  Weight: 108.9 kg

DRUGS (1)
  1. DEXTROSE [Suspect]

REACTIONS (3)
  - Peritoneal dialysis complication [None]
  - Fluid retention [None]
  - Myocardial infarction [None]
